FAERS Safety Report 11928882 (Version 2)
Quarter: 2016Q2

REPORT INFORMATION
  Report Type: Spontaneous
  Country: DE (occurrence: DE)
  Receive Date: 20160119
  Receipt Date: 20160420
  Transmission Date: 20160815
  Serious: Yes (Other)
  Sender: FDA-Public Use
  Company Number: DE-JNJFOC-20160101895

PATIENT
  Sex: Female

DRUGS (2)
  1. IBUPROFEN. [Suspect]
     Active Substance: IBUPROFEN
     Route: 065
  2. IBUPROFEN. [Suspect]
     Active Substance: IBUPROFEN
     Indication: URINARY TRACT INFECTION
     Route: 065

REACTIONS (31)
  - Pyelonephritis [Recovered/Resolved]
  - Eyelid oedema [Recovered/Resolved]
  - Hyperhidrosis [Recovered/Resolved]
  - Hypersensitivity [Recovered/Resolved]
  - Localised infection [Recovered/Resolved]
  - Condition aggravated [Recovered/Resolved]
  - Vulvovaginal candidiasis [Recovered/Resolved]
  - Goitre [Recovered/Resolved]
  - Asthma [Recovered/Resolved]
  - Eczema [Recovered/Resolved]
  - Fall [Recovered/Resolved]
  - Arthropod bite [Recovered/Resolved]
  - Urinary tract infection [Recovered/Resolved]
  - Diarrhoea [Recovered/Resolved]
  - Rash [Recovered/Resolved]
  - Headache [Recovered/Resolved]
  - Photodermatosis [Recovered/Resolved]
  - Product use issue [Recovered/Resolved]
  - Off label use [Recovered/Resolved]
  - Migraine [Recovered/Resolved]
  - Cervicobrachial syndrome [Recovered/Resolved]
  - Respiratory tract infection [Recovered/Resolved]
  - Gastrointestinal haemorrhage [Recovered/Resolved]
  - Ear infection [Recovered/Resolved]
  - Nausea [Recovered/Resolved]
  - Psychosomatic disease [Recovered/Resolved]
  - Vomiting [Recovered/Resolved]
  - Back pain [Recovered/Resolved]
  - Viral infection [Recovered/Resolved]
  - Tinnitus [Recovered/Resolved]
  - Helminthic infection [Recovered/Resolved]
